FAERS Safety Report 19653073 (Version 1)
Quarter: 2021Q3

REPORT INFORMATION
  Report Type: Spontaneous
  Country: DE (occurrence: DE)
  Receive Date: 20210803
  Receipt Date: 20210803
  Transmission Date: 20211014
  Serious: Yes (Life-Threatening, Other)
  Sender: FDA-Public Use
  Company Number: DE-PFIZER INC-202100931963

PATIENT
  Age: 39 Year
  Sex: Female
  Weight: 58 kg

DRUGS (2)
  1. CYTOTEC [Suspect]
     Active Substance: MISOPROSTOL
     Indication: LABOUR INDUCTION
     Dosage: 1 DF
     Route: 054
     Dates: start: 200707
  2. CYTOTEC [Suspect]
     Active Substance: MISOPROSTOL
     Dosage: 2 DF
     Route: 048
     Dates: start: 20070727, end: 20070728

REACTIONS (5)
  - Off label use [Unknown]
  - Product use issue [Unknown]
  - Exposure during pregnancy [Unknown]
  - Migraine [Recovered/Resolved with Sequelae]
  - Haemorrhage [Unknown]

NARRATIVE: CASE EVENT DATE: 20070727
